FAERS Safety Report 7563570-0 (Version None)
Quarter: 2011Q2

REPORT INFORMATION
  Report Type: 
  Country: None (occurrence: None)
  Receive Date: 20110622
  Receipt Date: 20110609
  Transmission Date: 20111010
  Serious: Yes (Death, Other)
  Sender: FDA-Public Use
  Company Number: CZ-CELGENEUS-217-21880-11061369

PATIENT

DRUGS (3)
  1. REVLIMID [Suspect]
     Indication: MULTIPLE MYELOMA
     Dosage: 25 MILLIGRAM
     Route: 048
  2. DEXAMETHASONE [Concomitant]
     Indication: MULTIPLE MYELOMA
     Route: 065
  3. GLUCOCORTICOIDS [Concomitant]
     Indication: MULTIPLE MYELOMA
     Route: 065

REACTIONS (6)
  - INFECTION [None]
  - NEUTROPENIA [None]
  - ANAEMIA [None]
  - THROMBOCYTOPENIA [None]
  - NEUROPATHY PERIPHERAL [None]
  - THROMBOSIS [None]
